FAERS Safety Report 21097957 (Version 1)
Quarter: 2022Q3

REPORT INFORMATION
  Report Type: Other
  Country: US (occurrence: None)
  Receive Date: 20220719
  Receipt Date: 20220719
  Transmission Date: 20221027
  Serious: Yes (Other)
  Sender: FDA-Public Use
  Company Number: US-ROCHE-2982000

PATIENT
  Sex: Female
  Weight: 76.7 kg

DRUGS (13)
  1. RITUXAN [Suspect]
     Active Substance: RITUXIMAB
     Indication: Lupus nephritis
     Route: 042
     Dates: start: 20201019, end: 20201124
  2. RITUXAN [Suspect]
     Active Substance: RITUXIMAB
     Indication: Polyarthritis
     Dosage: DATE OF TREATMENT 11/DEC/2021 TO 25/DEC/2021
     Route: 042
  3. RITUXAN [Suspect]
     Active Substance: RITUXIMAB
     Indication: Autoimmune haemolytic anaemia
  4. CELLCEPT [Suspect]
     Active Substance: MYCOPHENOLATE MOFETIL
     Indication: Product used for unknown indication
     Route: 065
  5. ALPRAZOLAM [Concomitant]
     Active Substance: ALPRAZOLAM
     Route: 048
  6. CYCLOSPORINE [Concomitant]
     Active Substance: CYCLOSPORINE
  7. ROCEPHIN [Concomitant]
     Active Substance: CEFTRIAXONE SODIUM
  8. GENGRAF [Concomitant]
     Active Substance: CYCLOSPORINE
  9. HYDROXYCHLOROQUINE [Concomitant]
     Active Substance: HYDROXYCHLOROQUINE
  10. LISINOPRIL [Concomitant]
     Active Substance: LISINOPRIL
  11. CELLCEPT [Concomitant]
     Active Substance: MYCOPHENOLATE MOFETIL
  12. PREDNISONE [Concomitant]
     Active Substance: PREDNISONE
  13. PROCHLORPERAZINE [Concomitant]
     Active Substance: PROCHLORPERAZINE

REACTIONS (9)
  - Chronic kidney disease [Unknown]
  - Nephrolithiasis [Unknown]
  - Sepsis [Unknown]
  - Off label use [Unknown]
  - Inflammation [Not Recovered/Not Resolved]
  - Pain [Recovered/Resolved]
  - Double stranded DNA antibody positive [Unknown]
  - Illness [Unknown]
  - Weight increased [Unknown]
